FAERS Safety Report 10156565 (Version 1)
Quarter: 2014Q2

REPORT INFORMATION
  Report Type: Not Available
  Country: US (occurrence: US)
  Receive Date: 20140507
  Receipt Date: 20140507
  Transmission Date: 20141212
  Serious: No
  Sender: FDA-Public Use
  Company Number: US-LUPIN PHARMACEUTICALS INC.-E2B_00001611

PATIENT
  Sex: Female
  Weight: 113.5 kg

DRUGS (8)
  1. IMIPRAMINE HCL [Suspect]
     Indication: PANIC ATTACK
     Dates: end: 20140106
  2. IMIPRAMINE HCL [Suspect]
     Dates: start: 20140107
  3. IMIPRAMINE HCL [Suspect]
     Indication: PANIC ATTACK
     Dates: end: 20140106
  4. IMIPRAMINE HCL [Suspect]
     Dates: start: 20140107
  5. IMIPRAMINE HCL [Suspect]
     Indication: PANIC ATTACK
     Dates: end: 20140106
  6. IMIPRAMINE HCL [Suspect]
     Dates: start: 20140107
  7. ATIVAN [Concomitant]
     Indication: ANXIETY
  8. VALIUM [Concomitant]
     Indication: ANXIETY

REACTIONS (7)
  - Dysuria [Not Recovered/Not Resolved]
  - Adverse drug reaction [Unknown]
  - Hallucination, auditory [Not Recovered/Not Resolved]
  - Delusion [Not Recovered/Not Resolved]
  - Dysgeusia [Not Recovered/Not Resolved]
  - Heart rate irregular [Not Recovered/Not Resolved]
  - Heart rate increased [Unknown]
